FAERS Safety Report 8911520 (Version 2)
Quarter: 2012Q4

REPORT INFORMATION
  Report Type: 
  Country: US (occurrence: US)
  Receive Date: 20121115
  Receipt Date: 20121126
  Transmission Date: 20130627
  Serious: Yes (Death, Hospitalization, Other)
  Sender: FDA-Public Use
  Company Number: US-009507513-0705USA02815

PATIENT

DRUGS (7)
  1. FOSAMAX [Suspect]
     Indication: OSTEOPOROSIS
     Dosage: 10 mg, qd
     Route: 048
     Dates: start: 19960708, end: 20020721
  2. FOSAMAX [Suspect]
     Dosage: 70 mg, QW
     Route: 048
     Dates: start: 20020722, end: 20070228
  3. PREMARIN [Concomitant]
     Indication: PRODUCT USED FOR UNKNOWN INDICATION
     Dosage: 0.625 mg, UNK
     Dates: start: 1988, end: 2005
  4. MK-0130 [Concomitant]
     Indication: PRODUCT USED FOR UNKNOWN INDICATION
     Dosage: 10 mg, UNK
     Dates: start: 1996
  5. VERAPAMIL [Concomitant]
     Indication: PRODUCT USED FOR UNKNOWN INDICATION
     Dosage: 260 mg, UNK
     Dates: start: 1996
  6. LANOXIN [Concomitant]
     Indication: PRODUCT USED FOR UNKNOWN INDICATION
     Dosage: 0.125 mg, UNK
     Dates: start: 1996
  7. PRILOSEC [Concomitant]
     Indication: PRODUCT USED FOR UNKNOWN INDICATION
     Dates: start: 1996

REACTIONS (113)
  - Osteomyelitis [Not Recovered/Not Resolved]
  - Osteonecrosis of jaw [Not Recovered/Not Resolved]
  - Weight decreased [Unknown]
  - Depression [Unknown]
  - Lobar pneumonia [Recovering/Resolving]
  - Herpes simplex [Not Recovered/Not Resolved]
  - Chronic obstructive pulmonary disease [Not Recovered/Not Resolved]
  - Anxiety [Not Recovered/Not Resolved]
  - Atrial fibrillation [Not Recovered/Not Resolved]
  - Cholelithiasis [Unknown]
  - Lumbar radiculopathy [Unknown]
  - Nerve root lesion [Unknown]
  - Neoplasm [Unknown]
  - Abscess jaw [Unknown]
  - Sinus disorder [Unknown]
  - Transient ischaemic attack [Recovered/Resolved]
  - Craniocerebral injury [Recovering/Resolving]
  - Pain [Not Recovered/Not Resolved]
  - Hyponatraemia [Recovering/Resolving]
  - Cardiomyopathy [Unknown]
  - Cardiac failure [Unknown]
  - Cholecystitis acute [Unknown]
  - Oral infection [Not Recovered/Not Resolved]
  - Oral infection [Recovering/Resolving]
  - Post herpetic neuralgia [Not Recovered/Not Resolved]
  - Tooth abscess [Unknown]
  - Immunosuppression [Unknown]
  - Poor dental condition [Unknown]
  - Bronchitis [Unknown]
  - Chronic obstructive pulmonary disease [Not Recovered/Not Resolved]
  - Atrial fibrillation [Not Recovered/Not Resolved]
  - Mitral valve prolapse [Not Recovered/Not Resolved]
  - Pubis fracture [Recovering/Resolving]
  - Jaw fracture [Unknown]
  - Arrhythmia [Unknown]
  - Eating disorder [Unknown]
  - Bone loss [Unknown]
  - Chest discomfort [Unknown]
  - Dyspnoea [Unknown]
  - Arthralgia [Unknown]
  - Headache [Unknown]
  - Tympanic membrane disorder [Unknown]
  - Otitis media [Recovering/Resolving]
  - Nasopharyngitis [Unknown]
  - Pyrexia [Unknown]
  - Bronchitis [Unknown]
  - Bone density decreased [Unknown]
  - Osteoarthritis [Unknown]
  - Fall [Unknown]
  - Contusion [Unknown]
  - Facial pain [Unknown]
  - Insomnia [Not Recovered/Not Resolved]
  - Sinusitis [Not Recovered/Not Resolved]
  - Fatigue [Unknown]
  - Cataract [Unknown]
  - Peptic ulcer [Unknown]
  - Melaena [Recovered/Resolved]
  - Adverse drug reaction [Unknown]
  - Iron deficiency anaemia [Not Recovered/Not Resolved]
  - Anaemia of chronic disease [Unknown]
  - Femur fracture [Unknown]
  - Cardiac murmur [Unknown]
  - Gingivitis [Unknown]
  - Sciatica [Unknown]
  - Mitral valve incompetence [Unknown]
  - Aortic stenosis [Unknown]
  - Drug hypersensitivity [Unknown]
  - Hepatitis [Unknown]
  - Tooth abscess [Unknown]
  - Bruxism [Unknown]
  - Jaw disorder [Unknown]
  - Neck pain [Unknown]
  - Cardiac failure congestive [Unknown]
  - Marburg disease [Unknown]
  - Herpes zoster [Unknown]
  - Adhesion [Unknown]
  - Adhesion [Unknown]
  - Rhinitis allergic [Unknown]
  - Glucose tolerance impaired [Unknown]
  - Aortic valve incompetence [Unknown]
  - Dyspnoea [Unknown]
  - Haemorrhage [Unknown]
  - Hip fracture [Unknown]
  - Spinal osteoarthritis [Unknown]
  - Bursitis [Unknown]
  - Periodontitis [Unknown]
  - Chronic hepatic failure [Fatal]
  - Renal failure [Fatal]
  - Cardio-respiratory arrest [Fatal]
  - Pneumonia [Recovering/Resolving]
  - Respiratory failure [Unknown]
  - Hypokalaemia [Unknown]
  - Hypernatraemia [Unknown]
  - Leukocytosis [Unknown]
  - Thrombocytopenia [Unknown]
  - Ileus [Unknown]
  - Malnutrition [Unknown]
  - Hypoalbuminaemia [Unknown]
  - Generalised oedema [Unknown]
  - Sepsis syndrome [Unknown]
  - Gastrointestinal haemorrhage [Unknown]
  - Coagulopathy [Unknown]
  - Atelectasis [Unknown]
  - Effusion [Unknown]
  - Nausea [Unknown]
  - Tooth disorder [Unknown]
  - Mental status changes [Unknown]
  - Cerebral small vessel ischaemic disease [Unknown]
  - Cerebral infarction [Unknown]
  - Constipation [Unknown]
  - Cardiomegaly [Unknown]
  - Fall [Unknown]
  - Interstitial lung disease [Unknown]
